FAERS Safety Report 22629478 (Version 1)
Quarter: 2023Q2

REPORT INFORMATION
  Report Type: Spontaneous
  Country: CZ (occurrence: CZ)
  Receive Date: 20230622
  Receipt Date: 20230622
  Transmission Date: 20230722
  Serious: Yes (Other)
  Sender: FDA-Public Use
  Company Number: None

PATIENT
  Age: 50 Year
  Sex: Female

DRUGS (15)
  1. FENTANYL [Suspect]
     Active Substance: FENTANYL
     Indication: Stoma site pain
     Dosage: 100 MICROGRAM, 2X100 UG/HOUR APPLIED EVERY 48 HRS
     Route: 065
     Dates: start: 2020, end: 2023
  2. FENTANYL TRANSDERMAL SYSTEM [Suspect]
     Active Substance: FENTANYL
     Indication: Stoma site pain
     Dosage: 200 MICROGRAM, 2X100 UG/HOUR APPLIED EVERY 72 HRS
     Route: 065
     Dates: start: 2009, end: 2020
  3. FENTANYL [Suspect]
     Active Substance: FENTANYL
     Indication: Stoma site pain
     Dosage: 200 MICROGRAM,2X100 UG/ HR APPLIED EVERY 72 HOURS
     Route: 065
     Dates: start: 2009, end: 2020
  4. FENTANYL [Suspect]
     Active Substance: FENTANYL
     Indication: Stoma site pain
     Dosage: 200 MICROGRAM, 2X100 UG/HOD APPLIED EVERY 48 HRS
     Route: 065
     Dates: start: 202303
  5. FENTANYL CITRATE [Suspect]
     Active Substance: FENTANYL CITRATE
     Indication: Stoma site pain
     Dosage: 300 MICROGRAM, UP TO 10 TIMES A DAY
     Route: 048
  6. MIRTAZAPINE [Concomitant]
     Active Substance: MIRTAZAPINE
     Dosage: 450 MILLIGRAM, QD, 0-0-1
     Route: 065
  7. DIAZEPAM [Concomitant]
     Active Substance: DIAZEPAM
     Dosage: 15 MILLIGRAM, QD, 0-0-1
     Route: 065
  8. MELATONIN [Concomitant]
     Active Substance: MELATONIN
     Dosage: 30 MILLIGRAM, QD
     Route: 065
  9. QUETIAPINE FUMARATE [Concomitant]
     Active Substance: QUETIAPINE FUMARATE
     Dosage: 200 MILLIGRAM, QD, 0-0-1
     Route: 065
  10. ENOXAPARIN SODIUM [Concomitant]
     Active Substance: ENOXAPARIN SODIUM
     Dosage: UNK
     Route: 065
  11. LYRICA [Concomitant]
     Active Substance: PREGABALIN
     Dosage: 400 MILLIGRAM, DURING THE DAY
     Route: 065
  12. RORENDO [Concomitant]
     Dosage: 4 MILLIGRAM, QD, 0-0-1
     Route: 065
  13. OMEPRAZOLE [Concomitant]
     Active Substance: OMEPRAZOLE
     Dosage: UNK
     Route: 065
  14. Rennie [Concomitant]
     Dosage: UNK
     Route: 065
  15. TRAZODONE HYDROCHLORIDE [Concomitant]
     Active Substance: TRAZODONE HYDROCHLORIDE
     Dosage: 1050 MILLIGRAM, QD, 0-0-1
     Route: 065

REACTIONS (4)
  - Allergic reaction to excipient [Unknown]
  - Insomnia [Unknown]
  - Off label use [Unknown]
  - Overdose [Unknown]

NARRATIVE: CASE EVENT DATE: 20200101
